FAERS Safety Report 13819796 (Version 1)
Quarter: 2017Q3

REPORT INFORMATION
  Report Type: Spontaneous
  Country: US (occurrence: US)
  Receive Date: 20170731
  Receipt Date: 20170731
  Transmission Date: 20171127
  Serious: Yes (Hospitalization, Other)
  Sender: FDA-Public Use
  Company Number: None

PATIENT
  Age: 27 Year
  Sex: Male
  Weight: 92.71 kg

DRUGS (1)
  1. AMPHETAMINE/DEXTROAMPHETAMINE [Suspect]
     Active Substance: AMPHETAMINE\DEXTROAMPHETAMINE
     Indication: ATTENTION DEFICIT/HYPERACTIVITY DISORDER
     Route: 048
     Dates: start: 20130105, end: 20170629

REACTIONS (5)
  - Paranoia [None]
  - Impulsive behaviour [None]
  - Irritability [None]
  - Anger [None]
  - Mania [None]

NARRATIVE: CASE EVENT DATE: 20170623
